FAERS Safety Report 7809655-2 (Version None)
Quarter: 2011Q4

REPORT INFORMATION
  Report Type: 
  Country: None (occurrence: None)
  Receive Date: 20111007
  Receipt Date: 20110922
  Transmission Date: 20120403
  Serious: Yes (Other)
  Sender: FDA-Public Use
  Company Number: LTI2011A00264

PATIENT
  Age: 77 Year
  Sex: Male

DRUGS (6)
  1. CRESTOR [Concomitant]
  2. AMLODIPINE [Concomitant]
  3. ACTOS [Suspect]
     Indication: TYPE 2 DIABETES MELLITUS
     Dosage: 30 MG (30 MG,1 IN 1 D) ORAL
     Route: 048
     Dates: start: 20071101, end: 20100801
  4. PLAVIX [Concomitant]
  5. RAMIPRIL [Concomitant]
  6. IKOREL (NICORANDIL) [Concomitant]

REACTIONS (1)
  - BLADDER CANCER [None]
